FAERS Safety Report 7272123-3 (Version None)
Quarter: 2011Q1

REPORT INFORMATION
  Report Type: 
  Country: None (occurrence: None)
  Receive Date: 20110128
  Receipt Date: 20110113
  Transmission Date: 20110831
  Serious: Yes (Other)
  Sender: FDA-Public Use
  Company Number: 012147

PATIENT

DRUGS (3)
  1. PREDNISOLONE [Concomitant]
  2. PLETAL [Suspect]
     Dosage: ORAL
     Route: 048
  3. WARFARIN (WARFARIN POTASSIUM) [Concomitant]

REACTIONS (1)
  - DEEP VEIN THROMBOSIS [None]
